FAERS Safety Report 15413222 (Version 2)
Quarter: 2018Q4

REPORT INFORMATION
  Report Type: Spontaneous
  Country: US (occurrence: US)
  Receive Date: 20180921
  Receipt Date: 20181002
  Transmission Date: 20190204
  Serious: No
  Sender: FDA-Public Use
  Company Number: US-TEVA-2018-US-955683

PATIENT
  Sex: Female

DRUGS (1)
  1. VENLAFAXINE HYDROCHLORIDE ER [Suspect]
     Active Substance: VENLAFAXINE HYDROCHLORIDE
     Dosage: 50 MILLIGRAM DAILY;
     Route: 065

REACTIONS (2)
  - Insomnia [Unknown]
  - Wrong technique in product usage process [Unknown]
